FAERS Safety Report 4795157-7 (Version None)
Quarter: 2005Q3

REPORT INFORMATION
  Report Type: 
  Country: None (occurrence: None)
  Receive Date: 20050919
  Receipt Date: 20050817
  Transmission Date: 20060218
  Serious: Yes (Hospitalization)
  Sender: FDA-Public Use
  Company Number: US-JNJFOC-20041204634

PATIENT
  Age: 44 Year
  Sex: Female
  Weight: 83.0083 kg

DRUGS (3)
  1. ORTHO TRI-CYCLEN LO [Suspect]
     Indication: DYSMENORRHOEA
     Dosage: 1 DOSE(S), 1 IN 1 DAY , ORAL
     Route: 048
     Dates: start: 20031110, end: 20041118
  2. PREVACID [Concomitant]
  3. ZIAC (BISELECT) [Concomitant]

REACTIONS (1)
  - DEEP VEIN THROMBOSIS [None]
